FAERS Safety Report 21690003 (Version 3)
Quarter: 2023Q1

REPORT INFORMATION
  Report Type: Report from Study
  Country: US (occurrence: US)
  Receive Date: 20221206
  Receipt Date: 20230323
  Transmission Date: 20230418
  Serious: No
  Sender: FDA-Public Use
  Company Number: US-002147023-NVSC2022US281864

PATIENT
  Age: 62 Year

DRUGS (1)
  1. COSENTYX [Suspect]
     Active Substance: SECUKINUMAB
     Indication: Psoriatic arthropathy
     Dosage: UNK
     Route: 065
     Dates: start: 202104, end: 20220930

REACTIONS (5)
  - Influenza [Recovering/Resolving]
  - Cough [Recovering/Resolving]
  - COVID-19 [Recovering/Resolving]
  - Laryngitis [Recovering/Resolving]
  - Respiratory symptom [Unknown]

NARRATIVE: CASE EVENT DATE: 20230208
